FAERS Safety Report 7725999-7 (Version None)
Quarter: 2011Q3

REPORT INFORMATION
  Report Type: 
  Country: None (occurrence: None)
  Receive Date: 20110902
  Receipt Date: 20110831
  Transmission Date: 20111222
  Serious: Yes (Death)
  Sender: FDA-Public Use
  Company Number: CH-ROCHE-677558

PATIENT
  Sex: Male
  Weight: 88 kg

DRUGS (2)
  1. METHOXY POLYETHYLENE GLYCOL-EPOETIN BETA [Suspect]
     Route: 065
     Dates: start: 20091007
  2. FERROUS SULFATE TAB [Concomitant]

REACTIONS (1)
  - CIRCULATORY COLLAPSE [None]
